FAERS Safety Report 23973320 (Version 3)
Quarter: 2024Q3

REPORT INFORMATION
  Report Type: Spontaneous
  Country: CA (occurrence: CA)
  Receive Date: 20240613
  Receipt Date: 20240719
  Transmission Date: 20241017
  Serious: Yes (Hospitalization, Other)
  Sender: BRISTOL MYERS SQUIBB
  Company Number: CA-BRISTOL-MYERS SQUIBB COMPANY-2024-094336

PATIENT
  Age: 80 Year
  Sex: Male
  Weight: 76.2 kg

DRUGS (4)
  1. ELIQUIS [Suspect]
     Active Substance: APIXABAN
     Indication: Atrial fibrillation
     Route: 048
     Dates: start: 201904
  2. POTASSIUM [Concomitant]
     Active Substance: POTASSIUM
     Indication: Bone disorder
  3. ALENDRONATE [Concomitant]
     Active Substance: ALENDRONATE SODIUM
     Indication: Product used for unknown indication
     Dates: start: 202405
  4. ZOPICLONE [Concomitant]
     Active Substance: ZOPICLONE
     Indication: Product used for unknown indication
     Dosage: 7.5 MG AT BEDTIME.

REACTIONS (7)
  - Pneumonia bacterial [Unknown]
  - Dyspnoea [Not Recovered/Not Resolved]
  - Fatigue [Not Recovered/Not Resolved]
  - Thrombosis [Unknown]
  - Weight decreased [Recovering/Resolving]
  - Haematological malignancy [Unknown]
  - Lymphoma [Unknown]

NARRATIVE: CASE EVENT DATE: 20190501
